FAERS Safety Report 21671238 (Version 1)
Quarter: 2022Q4

REPORT INFORMATION
  Report Type: Spontaneous
  Country: CN (occurrence: CN)
  Receive Date: 20221202
  Receipt Date: 20221202
  Transmission Date: 20230113
  Serious: Yes (Other)
  Sender: FDA-Public Use
  Company Number: CN-002147023-NVSC2022CN275902

PATIENT
  Age: 68 Year
  Sex: Male
  Weight: 55 kg

DRUGS (2)
  1. VORICONAZOLE [Suspect]
     Active Substance: VORICONAZOLE
     Indication: Fungal infection
     Dosage: 400 MG, BID
     Route: 048
     Dates: start: 20221104, end: 20221104
  2. VORICONAZOLE [Suspect]
     Active Substance: VORICONAZOLE
     Dosage: 200 MG, BID
     Route: 048
     Dates: start: 20221105, end: 20221107

REACTIONS (2)
  - Hallucination, visual [Recovered/Resolved]
  - Disorganised speech [Recovered/Resolved]

NARRATIVE: CASE EVENT DATE: 20221107
